FAERS Safety Report 17930918 (Version 1)
Quarter: 2020Q2

REPORT INFORMATION
  Report Type: Spontaneous
  Country: US (occurrence: US)
  Receive Date: 20200623
  Receipt Date: 20200623
  Transmission Date: 20200714
  Serious: Yes (Death, Other)
  Sender: FDA-Public Use
  Company Number: US-GILEAD-2020-0474713

PATIENT
  Age: 79 Year
  Sex: Female
  Weight: 52.2 kg

DRUGS (4)
  1. REMDESIVIR. [Suspect]
     Active Substance: REMDESIVIR
     Indication: COVID-19
     Dosage: 100 MG, QD
     Route: 042
     Dates: start: 20200601, end: 20200603
  2. CLINDAMYCIN. [Concomitant]
     Active Substance: CLINDAMYCIN
     Dosage: UNK
     Dates: start: 20200528, end: 20200604
  3. METHYLPREDNISOLONE. [Concomitant]
     Active Substance: METHYLPREDNISOLONE
     Dosage: UNK
     Dates: start: 20200528, end: 20200607
  4. VANCOMYCIN [Concomitant]
     Active Substance: VANCOMYCIN
     Dosage: UNK
     Dates: start: 20200528, end: 20200608

REACTIONS (4)
  - Hepatic enzyme increased [Fatal]
  - Acute kidney injury [Fatal]
  - COVID-19 [Fatal]
  - Respiratory disorder [Fatal]

NARRATIVE: CASE EVENT DATE: 202006
